FAERS Safety Report 7980386-1 (Version None)
Quarter: 2011Q4

REPORT INFORMATION
  Report Type: 
  Country: None (occurrence: None)
  Receive Date: 20111214
  Receipt Date: 20111116
  Transmission Date: 20120403
  Serious: Yes (Death, Other)
  Sender: FDA-Public Use
  Company Number: PHHY2011JP51512

PATIENT
  Age: 70 Year
  Sex: Male

DRUGS (4)
  1. ETHAMBUTOL HYDROCHLORIDE [Suspect]
     Indication: PULMONARY TUBERCULOSIS
     Dosage: UNK
     Route: 048
  2. PYRAZINAMIDE [Suspect]
     Dosage: UNK
     Route: 048
  3. ISONIAZID [Suspect]
     Dosage: UNK
  4. RIFAMPICIN [Suspect]
     Dosage: UNK
     Route: 048

REACTIONS (3)
  - RENAL FAILURE ACUTE [None]
  - BLOOD POTASSIUM INCREASED [None]
  - RENAL IMPAIRMENT [None]
